FAERS Safety Report 9294783 (Version 1)
Quarter: 2013Q2

REPORT INFORMATION
  Report Type: Spontaneous
  Country: US (occurrence: US)
  Receive Date: 20130517
  Receipt Date: 20130517
  Transmission Date: 20140414
  Serious: Yes (Hospitalization, Disabling, Other)
  Sender: FDA-Public Use
  Company Number: US-TARO-2013P1005877

PATIENT
  Sex: Female

DRUGS (2)
  1. WARFARIN SODIUM TABLETS USP 3MG [Suspect]
     Dates: start: 2008
  2. WARFARIN SODIUM TABLETS USP 4MG [Suspect]
     Dates: start: 2008

REACTIONS (3)
  - Hip arthroplasty [Recovered/Resolved]
  - Abasia [Unknown]
  - Hospitalisation [Recovered/Resolved]
